FAERS Safety Report 9049710 (Version 3)
Quarter: 2014Q1

REPORT INFORMATION
  Report Type: Spontaneous
  Country: US (occurrence: US)
  Receive Date: 20130205
  Receipt Date: 20140213
  Transmission Date: 20141002
  Serious: Yes (Other)
  Sender: FDA-Public Use
  Company Number: US-BRISTOL-MYERS SQUIBB COMPANY-17328543

PATIENT
  Age: 43 Year
  Sex: Female

DRUGS (5)
  1. ORENCIA [Suspect]
     Indication: RHEUMATOID ARTHRITIS
     Dosage: LAST DOSE OF ORENCIA WAS IN OCTOBER 2012 ?LOT:2G69084,EXP:MAY2015?DOSE:750 MG IN 100 CC NSS
     Route: 042
     Dates: start: 20121005, end: 20121022
  2. BENADRYL [Concomitant]
  3. BENADRYL [Concomitant]
  4. SOLU-MEDROL [Concomitant]
     Indication: PREMEDICATION
  5. PEPCID [Concomitant]
     Indication: PREMEDICATION

REACTIONS (1)
  - Wheezing [Recovered/Resolved]
